FAERS Safety Report 8269451-1 (Version None)
Quarter: 2012Q2

REPORT INFORMATION
  Report Type: 
  Country: None (occurrence: None)
  Receive Date: 20120409
  Receipt Date: 20120328
  Transmission Date: 20120825
  Serious: Yes (Other)
  Sender: FDA-Public Use
  Company Number: JP-ROCHE-1055382

PATIENT
  Sex: Female

DRUGS (2)
  1. XELODA [Suspect]
     Indication: BREAST CANCER
     Dosage: DOSAGE IS UNCERTAIN.
     Route: 048
  2. TYKERB [Concomitant]
     Indication: BREAST CANCER
     Dosage: DOSAGE IS UNCERTAIN.
     Route: 048

REACTIONS (1)
  - HYPERAMMONAEMIA [None]
